FAERS Safety Report 5926107-5 (Version None)
Quarter: 2008Q4

REPORT INFORMATION
  Report Type: 
  Country: None (occurrence: None)
  Receive Date: 20081016
  Receipt Date: 20081005
  Transmission Date: 20090506
  Serious: Yes (Other)
  Sender: FDA-Public Use
  Company Number: 20337

PATIENT

DRUGS (3)
  1. PACLITAXEL [Suspect]
     Indication: BREAST CANCER
     Dosage: 100 MG/M2 WEEKLY IV
     Route: 042
  2. BORTEZOMIB [Suspect]
     Indication: BREAST CANCER
     Dosage: 1.3 MG/M2 2/WK IV
     Route: 042
  3. SODIUM CHLORIDE [Concomitant]

REACTIONS (1)
  - NEURALGIA [None]
